FAERS Safety Report 7073557-2 (Version None)
Quarter: 2010Q4

REPORT INFORMATION
  Report Type: 
  Country: None (occurrence: None)
  Receive Date: 20101029
  Receipt Date: 20100709
  Transmission Date: 20110411
  Serious: No
  Sender: FDA-Public Use
  Company Number: A0869486A

PATIENT
  Age: 74 Year
  Sex: Male

DRUGS (10)
  1. ADVAIR DISKUS 100/50 [Suspect]
     Indication: PRODUCT USED FOR UNKNOWN INDICATION
     Dosage: 1PUFF TWICE PER DAY
     Route: 055
     Dates: start: 20100621, end: 20100708
  2. PLAVIX [Concomitant]
  3. METOPROLOL [Concomitant]
  4. FAMOTIDINE [Concomitant]
  5. ENALAPRIL MALEATE [Concomitant]
  6. UROXATRAL [Concomitant]
  7. FINASTERIDE [Concomitant]
  8. CRESTOR [Concomitant]
  9. SPIRIVA [Concomitant]
  10. ASPIRIN [Concomitant]

REACTIONS (1)
  - APHONIA [None]
